FAERS Safety Report 7784945-0 (Version None)
Quarter: 2011Q3

REPORT INFORMATION
  Report Type: 
  Country: None (occurrence: None)
  Receive Date: 20110928
  Receipt Date: 20110919
  Transmission Date: 20111222
  Serious: Yes (Hospitalization)
  Sender: FDA-Public Use
  Company Number: US-BAYER-2011-052564

PATIENT
  Age: 24 Year
  Sex: Female
  Weight: 61.224 kg

DRUGS (14)
  1. NORVASC [Concomitant]
     Dosage: 5 MG, UNK
  2. AMBIEN [Concomitant]
     Dosage: 10 MG
  3. COMBIVENT [Concomitant]
  4. VASOTEC [Concomitant]
  5. ALDACTONE [Concomitant]
  6. FROVA [Concomitant]
     Dosage: 2.5
  7. FLUCONAZOLE [Concomitant]
     Dosage: 200 MG
  8. IBUPROFEN [Concomitant]
  9. PROTONIX [Concomitant]
  10. LEXAPRO [Concomitant]
     Dosage: 10 MG
  11. YASMIN [Suspect]
     Indication: CONTRACEPTION
     Dosage: UNK
     Dates: start: 20030101, end: 20070101
  12. MEDROL [Concomitant]
  13. TOPAMAX [Concomitant]
  14. XANAX [Concomitant]

REACTIONS (5)
  - INJURY [None]
  - DEEP VEIN THROMBOSIS [None]
  - EMBOLISM [None]
  - PULMONARY EMBOLISM [None]
  - PAIN [None]
